FAERS Safety Report 20376182 (Version 1)
Quarter: 2022Q1

REPORT INFORMATION
  Report Type: Spontaneous
  Country: US (occurrence: US)
  Receive Date: 20220125
  Receipt Date: 20220125
  Transmission Date: 20220424
  Serious: No
  Sender: FDA-Public Use
  Company Number: US-BAYER-2022A013405

PATIENT
  Sex: Female

DRUGS (1)
  1. CLARITIN [Suspect]
     Active Substance: LORATADINE
     Indication: Nutritional supplementation
     Dosage: 25 DF, ONCE
     Route: 048

REACTIONS (3)
  - Accidental exposure to product by child [Unknown]
  - Product use in unapproved indication [None]
  - Wrong technique in product usage process [None]
